FAERS Safety Report 8310271-7 (Version None)
Quarter: 2012Q2

REPORT INFORMATION
  Report Type: 
  Country: None (occurrence: None)
  Receive Date: 20120425
  Receipt Date: 20120416
  Transmission Date: 20120825
  Serious: Yes (Other)
  Sender: FDA-Public Use
  Company Number: US-ASTRAZENECA-2012SE25054

PATIENT
  Age: 59 Year
  Sex: Female

DRUGS (2)
  1. GENERIC MEDICATIONS [Suspect]
  2. NEXIUM [Suspect]
     Route: 048

REACTIONS (5)
  - DEPRESSION [None]
  - EPILEPSY [None]
  - STRESS [None]
  - DRUG INEFFECTIVE [None]
  - VISUAL ACUITY REDUCED [None]
